FAERS Safety Report 5890226-2 (Version None)
Quarter: 2008Q3

REPORT INFORMATION
  Report Type: 
  Country: None (occurrence: None)
  Receive Date: 20080919
  Receipt Date: 20080908
  Transmission Date: 20090109
  Serious: Yes (Other)
  Sender: FDA-Public Use
  Company Number: US-PFIZER INC-2008076568

PATIENT
  Sex: Male
  Weight: 117.9 kg

DRUGS (7)
  1. CHANTIX [Suspect]
     Indication: SMOKING CESSATION THERAPY
     Dates: start: 20080801, end: 20080906
  2. DEPAKOTE [Concomitant]
  3. SEROQUEL [Concomitant]
  4. INDERAL [Concomitant]
  5. LEXAPRO [Concomitant]
  6. KLONOPIN [Concomitant]
  7. LUMIGAN [Concomitant]

REACTIONS (3)
  - ANXIETY [None]
  - BIPOLAR DISORDER [None]
  - MANIA [None]
